FAERS Safety Report 6329528-4 (Version None)
Quarter: 2009Q3

REPORT INFORMATION
  Report Type: 
  Country: None (occurrence: None)
  Receive Date: 20090826
  Receipt Date: 20090814
  Transmission Date: 20100115
  Serious: Yes (Other)
  Sender: FDA-Public Use
  Company Number: DE-ELI_LILLY_AND_COMPANY-DE200908003112

PATIENT
  Sex: Male

DRUGS (5)
  1. ARICLAIM [Suspect]
     Indication: DIABETIC NEUROPATHY
     Dosage: 30 MG, DAILY (1/D)
     Route: 065
     Dates: start: 20090728, end: 20090803
  2. ARICLAIM [Suspect]
     Dosage: 60 MG, DAILY (1/D)
     Route: 065
     Dates: start: 20090804, end: 20090811
  3. METFORMIN HCL [Concomitant]
     Dosage: 850 MG 2 X 1/2 TABLET, UNK
     Route: 065
  4. BEZAFIBRAT [Concomitant]
     Dosage: 400 MG, DAILY (1/D) (2 X 200 MG)
     Route: 065
  5. THIOCTACID [Concomitant]
     Dosage: 1200 MG, DAILY (1/D) (2 X 600 MG)
     Route: 065

REACTIONS (3)
  - HYPERHIDROSIS [None]
  - HYPOAESTHESIA [None]
  - MUSCULAR WEAKNESS [None]
